FAERS Safety Report 8218106-8 (Version None)
Quarter: 2012Q1

REPORT INFORMATION
  Report Type: 
  Country: None (occurrence: None)
  Receive Date: 20120319
  Receipt Date: 20120305
  Transmission Date: 20120608
  Serious: Yes (Other)
  Sender: FDA-Public Use
  Company Number: JP-ROCHE-1022162

PATIENT
  Sex: Male

DRUGS (9)
  1. ACTEMRA [Suspect]
     Route: 041
     Dates: start: 20101215, end: 20101215
  2. PREDNISOLONE [Concomitant]
     Indication: RHEUMATOID ARTHRITIS
     Route: 048
     Dates: end: 20090716
  3. PREDNISOLONE [Concomitant]
     Route: 048
     Dates: start: 20100129
  4. ACTEMRA [Suspect]
     Indication: RHEUMATOID ARTHRITIS
     Route: 041
     Dates: start: 20090817, end: 20101027
  5. AZULFIDINE [Concomitant]
     Indication: RHEUMATOID ARTHRITIS
     Route: 048
     Dates: start: 20090717, end: 20091013
  6. RIMATIL [Concomitant]
     Indication: RHEUMATOID ARTHRITIS
     Route: 048
     Dates: start: 20090804
  7. RHEUMATREX [Concomitant]
     Indication: RHEUMATOID ARTHRITIS
     Route: 048
  8. ACTEMRA [Suspect]
     Route: 041
     Dates: start: 20110203, end: 20110203
  9. PREDNISOLONE [Concomitant]
     Route: 048
     Dates: start: 20090717, end: 20100128

REACTIONS (1)
  - TONSILLECTOMY [None]
